FAERS Safety Report 18130192 (Version 1)
Quarter: 2020Q3

REPORT INFORMATION
  Report Type: Report from Study
  Country: CO (occurrence: CO)
  Receive Date: 20200810
  Receipt Date: 20200810
  Transmission Date: 20201103
  Serious: Yes (Other)
  Sender: FDA-Public Use
  Company Number: CO-ACTELION-A-CH2019-198109

PATIENT
  Sex: Female
  Weight: 52 kg

DRUGS (6)
  1. OPSUMIT [Suspect]
     Active Substance: MACITENTAN
     Indication: PULMONARY ARTERIAL HYPERTENSION
     Dosage: 10 MG, QD
     Route: 048
     Dates: start: 20191125
  2. SILDENAFIL. [Concomitant]
     Active Substance: SILDENAFIL
     Dosage: 10 MG, QD
     Route: 048
  3. ENALAPRIL [Concomitant]
     Active Substance: ENALAPRIL
  4. CALCIUM [Concomitant]
     Active Substance: CALCIUM
  5. TRACLEER [Suspect]
     Active Substance: BOSENTAN
     Indication: PULMONARY ARTERIAL HYPERTENSION
     Dosage: 125 MG, BID
     Route: 048
     Dates: end: 20191024
  6. TRAMADOL + ACETAMINOFEN [Concomitant]
     Active Substance: ACETAMINOPHEN\TRAMADOL

REACTIONS (10)
  - Loss of consciousness [Not Recovered/Not Resolved]
  - Varicose ulceration [Recovering/Resolving]
  - Hypoaesthesia [Unknown]
  - Brain natriuretic peptide increased [Not Recovered/Not Resolved]
  - Illness [Unknown]
  - Insomnia [Not Recovered/Not Resolved]
  - Coagulopathy [Unknown]
  - Wound [Not Recovered/Not Resolved]
  - Epilepsy [Not Recovered/Not Resolved]
  - Pain in extremity [Recovering/Resolving]

NARRATIVE: CASE EVENT DATE: 2016
